FAERS Safety Report 7647572-1 (Version None)
Quarter: 2011Q3

REPORT INFORMATION
  Report Type: 
  Country: None (occurrence: None)
  Receive Date: 20110801
  Receipt Date: 20110725
  Transmission Date: 20111222
  Serious: Yes (Death)
  Sender: FDA-Public Use
  Company Number: DE-ELI_LILLY_AND_COMPANY-DE201107006416

PATIENT
  Age: 58 Year
  Sex: Female
  Weight: 150 kg

DRUGS (4)
  1. HEPARIN [Concomitant]
  2. PRASUGREL HYDROCHLORIDE [Suspect]
     Dosage: 10 MG, UNK
     Dates: start: 20110615
  3. ASPISOL [Concomitant]
  4. PRASUGREL HYDROCHLORIDE [Suspect]
     Indication: ACUTE CORONARY SYNDROME
     Dosage: 60 MG, UNK
     Dates: start: 20110615

REACTIONS (8)
  - HAEMOGLOBIN DECREASED [None]
  - RENAL FAILURE [None]
  - PULMONARY OEDEMA [None]
  - BLOOD SODIUM INCREASED [None]
  - CARDIOGENIC SHOCK [None]
  - BLOOD CREATINE PHOSPHOKINASE INCREASED [None]
  - BLOOD CREATININE INCREASED [None]
  - ACTIVATED PARTIAL THROMBOPLASTIN TIME PROLONGED [None]
